FAERS Safety Report 5271874-X (Version None)
Quarter: 2007Q1

REPORT INFORMATION
  Report Type: 
  Country: None (occurrence: None)
  Receive Date: 20070316
  Receipt Date: 20070306
  Transmission Date: 20070707
  Serious: Yes (Disabling)
  Sender: FDA-Public Use
  Company Number: OSCN-GE-0703S-0112

PATIENT
  Age: 22 Year
  Sex: Female
  Weight: 70 kg

DRUGS (6)
  1. OMNISCAN [Suspect]
     Indication: DRUG USE FOR UNKNOWN INDICATION
     Dosage: SEE IMAGE
     Route: 042
     Dates: start: 20050901, end: 20050901
  2. OMNISCAN [Suspect]
     Indication: DRUG USE FOR UNKNOWN INDICATION
     Dosage: SEE IMAGE
     Route: 042
     Dates: start: 20061207, end: 20061207
  3. AMITRIPTYLINE HYDROCHLORIDE (AMINEURIN) [Concomitant]
  4. OMEPRAZOLE (OMEP) [Concomitant]
  5. MARCUMAR [Concomitant]
  6. ALUMINIUM HYDROXIDE (ANTI-PHOSPHAT) [Concomitant]

REACTIONS (5)
  - DRUG INEFFECTIVE [None]
  - IMMOBILE [None]
  - OEDEMA PERIPHERAL [None]
  - PAIN IN EXTREMITY [None]
  - SKIN INDURATION [None]
